FAERS Safety Report 8615177-1 (Version None)
Quarter: 2012Q3

REPORT INFORMATION
  Report Type: 
  Country: None (occurrence: None)
  Receive Date: 20120823
  Receipt Date: 20120814
  Transmission Date: 20120928
  Serious: Yes (Hospitalization)
  Sender: FDA-Public Use
  Company Number: IT-009507513-1208ITA002941

PATIENT

DRUGS (8)
  1. QUETIAPINE FUMARATE [Concomitant]
  2. FUROSEMIDE [Concomitant]
  3. GLICLAZIDE [Concomitant]
  4. JANUVIA [Suspect]
     Dosage: 100 MG, QD
     Route: 048
     Dates: start: 20090116, end: 20120101
  5. VALPROIC ACID [Concomitant]
  6. BISOPROLOL FUMARATE [Concomitant]
  7. METFORMIN [Concomitant]
     Route: 048
  8. HALOPERIDOL [Concomitant]
     Route: 048

REACTIONS (1)
  - ADENOCARCINOMA PANCREAS [None]
